FAERS Safety Report 4444601-3 (Version None)
Quarter: 2004Q3

REPORT INFORMATION
  Report Type: 
  Country: None (occurrence: None)
  Receive Date: 20040907
  Receipt Date: 20040901
  Transmission Date: 20050211
  Serious: Yes (Life-Threatening, Hospitalization)
  Sender: FDA-Public Use
  Company Number: 2004-06-0106

PATIENT
  Age: 26 Year
  Sex: Female
  Weight: 56 kg

DRUGS (2)
  1. TEMODAL [Suspect]
     Dosage: 200 MG/M2-   ORAL
     Route: 048
  2. DEPAKINE CHRONO (SODIUM VALPROATE) [Concomitant]

REACTIONS (3)
  - APLASIA [None]
  - FEBRILE NEUTROPENIA [None]
  - THROMBOCYTOPENIA [None]
